FAERS Safety Report 5335259-X (Version None)
Quarter: 2007Q2

REPORT INFORMATION
  Report Type: 
  Country: None (occurrence: None)
  Receive Date: 20070525
  Receipt Date: 20070516
  Transmission Date: 20071010
  Serious: Yes (Other)
  Sender: FDA-Public Use
  Company Number: US-PFIZER INC-2007019708

PATIENT
  Sex: Male

DRUGS (4)
  1. XANAX [Suspect]
  2. PIROXICAM [Interacting]
  3. CLONIDINE [Interacting]
  4. TRAMADOL HCL [Interacting]

REACTIONS (8)
  - COGNITIVE DISORDER [None]
  - DISTURBANCE IN ATTENTION [None]
  - DRUG EFFECT INCREASED [None]
  - DRUG INTERACTION [None]
  - EUPHORIC MOOD [None]
  - MENTAL IMPAIRMENT [None]
  - SUICIDAL IDEATION [None]
  - THINKING ABNORMAL [None]
